FAERS Safety Report 13256646 (Version 1)
Quarter: 2017Q1

REPORT INFORMATION
  Report Type: Spontaneous
  Country: US (occurrence: US)
  Receive Date: 20170220
  Receipt Date: 20170220
  Transmission Date: 20170428
  Serious: Yes (Death)
  Sender: FDA-Public Use
  Company Number: None

PATIENT
  Age: 25 Year
  Sex: Male

DRUGS (6)
  1. TETRABENAZINE. [Suspect]
     Active Substance: TETRABENAZINE
     Indication: THINKING ABNORMAL
     Dosage: ?          OTHER FREQUENCY:G TUBE;OTHER ROUTE:CRUSH 1 TAB + ADM G TUBE?
  2. GYLCOPYPROLATE [Concomitant]
  3. OMEPRAZOLE. [Concomitant]
     Active Substance: OMEPRAZOLE
  4. KEPPRA [Concomitant]
     Active Substance: LEVETIRACETAM
  5. SERQUEL [Concomitant]
  6. ZONISAMIDE. [Concomitant]
     Active Substance: ZONISAMIDE

REACTIONS (1)
  - Death [None]

NARRATIVE: CASE EVENT DATE: 20161230
